FAERS Safety Report 5131165-4 (Version None)
Quarter: 2006Q3

REPORT INFORMATION
  Report Type: 
  Country: None (occurrence: None)
  Receive Date: 20060830
  Receipt Date: 20050908
  Transmission Date: 20061208
  Serious: Yes (Other)
  Sender: FDA-Public Use
  Company Number: 200511878BWH

PATIENT

DRUGS (2)
  1. TRASYLOL [Suspect]
     Indication: CARDIAC OPERATION
     Dosage: 1 ML, ONCE, INTRAVENOUS
     Route: 042
  2. AMINOCAPROIC ACID [Concomitant]

REACTIONS (1)
  - HYPERSENSITIVITY [None]
